FAERS Safety Report 6782506-3 (Version None)
Quarter: 2010Q2

REPORT INFORMATION
  Report Type: 
  Country: None (occurrence: None)
  Receive Date: 20100616
  Receipt Date: 20100601
  Transmission Date: 20101027
  Serious: Yes (Other)
  Sender: FDA-Public Use
  Company Number: JPI-P-010862

PATIENT
  Age: 24 Year
  Sex: Male

DRUGS (2)
  1. XYREM [Suspect]
     Indication: NARCOLEPSY
     Dosage: 4.5 GM (2.25 GM, 2 IN 1 D), ORAL, 9 GM (4.5  GM, 2 IN 1 D), ORAL
     Route: 048
     Dates: start: 20080528
  2. METHYLPHENIDATE [Concomitant]

REACTIONS (2)
  - CONVULSION [None]
  - HYPOTHERMIA [None]
